FAERS Safety Report 8880510 (Version 4)
Quarter: 2013Q3

REPORT INFORMATION
  Report Type: Spontaneous
  Country: US (occurrence: US)
  Receive Date: 20121031
  Receipt Date: 20130830
  Transmission Date: 20140515
  Serious: Yes (Other)
  Sender: FDA-Public Use
  Company Number: US-ASTRAZENECA-2012SE82205

PATIENT
  Age: 49 Year
  Sex: Female
  Weight: 81.6 kg

DRUGS (14)
  1. SEROQUEL [Suspect]
     Indication: BIPOLAR DISORDER
     Route: 048
     Dates: start: 2006
  2. SEROQUEL [Suspect]
     Indication: BIPOLAR DISORDER
     Route: 048
     Dates: start: 2006
  3. SEROQUEL [Suspect]
     Indication: BIPOLAR DISORDER
     Route: 048
     Dates: start: 2010
  4. SEROQUEL [Suspect]
     Indication: BIPOLAR DISORDER
     Route: 048
     Dates: start: 2010
  5. CRESTOR [Suspect]
     Route: 048
  6. LORAZEPAM [Concomitant]
     Indication: ANXIETY
  7. DEPAKOTE [Concomitant]
     Indication: MOOD SWINGS
     Dates: start: 2010
  8. GEODON [Concomitant]
     Indication: BIPOLAR DISORDER
  9. METFORMIN [Concomitant]
     Indication: DIABETES MELLITUS
     Dates: start: 2008
  10. LASIX [Concomitant]
     Indication: FLUID RETENTION
  11. LASIX [Concomitant]
     Indication: FLUID RETENTION
  12. POTASSIUM [Concomitant]
     Dosage: DAILY
  13. POTASSIUM [Concomitant]
     Dosage: BID
  14. KLONOPIN [Concomitant]
     Indication: ANXIETY
     Route: 060

REACTIONS (14)
  - Road traffic accident [Unknown]
  - Accident [Unknown]
  - Bipolar disorder [Unknown]
  - Anxiety [Unknown]
  - Agitation [Unknown]
  - Adverse event [Unknown]
  - Feeling drunk [Unknown]
  - Diabetes mellitus [Unknown]
  - Thyroid disorder [Unknown]
  - Fluid retention [Unknown]
  - Eye disorder [Unknown]
  - Mobility decreased [Unknown]
  - Insomnia [Unknown]
  - Intentional drug misuse [Unknown]
